FAERS Safety Report 18559458 (Version 3)
Quarter: 2020Q4

REPORT INFORMATION
  Report Type: Spontaneous
  Country: US (occurrence: US)
  Receive Date: 20201130
  Receipt Date: 20201211
  Transmission Date: 20210114
  Serious: No
  Sender: FDA-Public Use
  Company Number: US-PFIZER INC-2019018507

PATIENT
  Age: 67 Year
  Sex: Female

DRUGS (3)
  1. LYRICA [Suspect]
     Active Substance: PREGABALIN
     Indication: BACK PAIN
     Dosage: 25 MG [UP TO 5 TIMES A DAY]
  2. LYRICA [Suspect]
     Active Substance: PREGABALIN
     Indication: PAIN
     Dosage: UNK, 2X/DAY (1-2 TABLETS IN THE MORNING AND 2-3 TABLETS IN THE EVENING)
     Route: 048
  3. LYRICA [Suspect]
     Active Substance: PREGABALIN
     Indication: RADICULOPATHY
     Dosage: UNK, 2X/DAY (TAKE 1-2 CAPSULES BY MOUTH IN THE MORNING AND 1-2 CAPSULES IN THE EVENING)
     Route: 048

REACTIONS (1)
  - Reflux gastritis [Unknown]
